FAERS Safety Report 9500197 (Version 1)
Quarter: 2013Q1

REPORT INFORMATION
  Report Type: Spontaneous
  Country: US (occurrence: None)
  Receive Date: 20130107
  Receipt Date: 20130107
  Transmission Date: 20140127
  Serious: No
  Sender: FDA-Public Use
  Company Number: PHEH2012US021007

PATIENT
  Age: 42 Year
  Sex: Female

DRUGS (1)
  1. GILENYA [Suspect]
     Indication: MULTIPLE SCLEROSIS
     Route: 048
     Dates: start: 201103, end: 201107

REACTIONS (7)
  - Blood count abnormal [None]
  - Red blood cell count decreased [None]
  - Liver function test abnormal [None]
  - White blood cell count decreased [None]
  - Drug administration error [None]
  - Blood iron decreased [None]
  - Alanine aminotransferase increased [None]
